FAERS Safety Report 6999558-8 (Version None)
Quarter: 2010Q3

REPORT INFORMATION
  Report Type: 
  Country: None (occurrence: None)
  Receive Date: 20100920
  Receipt Date: 20100610
  Transmission Date: 20110219
  Serious: No
  Sender: FDA-Public Use
  Company Number: US-ASTRAZENECA-2010SE27120

PATIENT
  Sex: Female
  Weight: 63.5 kg

DRUGS (2)
  1. SEROQUEL [Suspect]
     Indication: BIPOLAR DISORDER
     Dosage: 400 MG QAM AND 800 MG QHS
     Route: 048
     Dates: start: 20030101, end: 20100601
  2. SEROQUEL [Suspect]
     Route: 048
     Dates: start: 20100601

REACTIONS (5)
  - DRUG DOSE OMISSION [None]
  - EYE ROLLING [None]
  - FORMICATION [None]
  - SLEEP DISORDER [None]
  - VOMITING [None]
